FAERS Safety Report 9399077 (Version 2)
Quarter: 2013Q3

REPORT INFORMATION
  Report Type: Spontaneous
  Country: BR (occurrence: BR)
  Receive Date: 20130715
  Receipt Date: 20130719
  Transmission Date: 20140515
  Serious: Yes (Other)
  Sender: FDA-Public Use
  Company Number: BR-AMGEN-BRASP2013048801

PATIENT
  Age: 45 Year
  Sex: Female
  Weight: 73 kg

DRUGS (9)
  1. ENBREL [Suspect]
     Indication: RHEUMATOID ARTHRITIS
     Dosage: 50 MG, 1X/WEEK
     Route: 058
     Dates: start: 201304, end: 201305
  2. ARAVA [Concomitant]
     Dosage: 20 MG, 1X/DAY
     Dates: start: 2012
  3. TECNOMET                           /00113801/ [Concomitant]
     Dosage: 8 TABLETS, 1X/WEEK
     Dates: start: 201210
  4. PRELONE                            /00016201/ [Concomitant]
     Dosage: 50 MG, 1X/DAY
     Dates: start: 2012
  5. FLANCOX [Concomitant]
     Dosage: 400 MG, 1X/DAY
     Dates: start: 2012
  6. REUQUINOL [Concomitant]
     Dosage: 400 MG, 1X/DAY
     Dates: start: 2012
  7. FULCIN                             /00027101/ [Concomitant]
     Indication: RHEUMATOID ARTHRITIS
     Dosage: 5 MG, 1X/DAY
     Dates: start: 2012
  8. CALCIUM [Concomitant]
     Dosage: 600 MG, 1X/DAY
  9. OMEPRAZOLE [Concomitant]
     Dosage: 20 MG, 1X/DAY
     Dates: start: 2012

REACTIONS (2)
  - Hypertension [Unknown]
  - Pain [Not Recovered/Not Resolved]
